FAERS Safety Report 5085197-5 (Version None)
Quarter: 2006Q3

REPORT INFORMATION
  Report Type: 
  Country: None (occurrence: None)
  Receive Date: 20060817
  Receipt Date: 20060804
  Transmission Date: 20061208
  Serious: Yes (Hospitalization)
  Sender: FDA-Public Use
  Company Number: CERZ-11293

PATIENT
  Age: 54 Year
  Sex: Female

DRUGS (2)
  1. CEREZYME [Suspect]
     Indication: GAUCHER'S DISEASE
     Dates: start: 20060501, end: 20060802
  2. HORMONE REPLACEMENT THERAPY [Concomitant]

REACTIONS (10)
  - ACCIDENTAL EXPOSURE [None]
  - ARRHYTHMIA [None]
  - BRADYCARDIA [None]
  - CHILLS [None]
  - DIZZINESS [None]
  - FATIGUE [None]
  - FLUSHING [None]
  - HYPERTENSION [None]
  - RASH PRURITIC [None]
  - THROAT TIGHTNESS [None]
